FAERS Safety Report 6208464-8 (Version None)
Quarter: 2009Q2

REPORT INFORMATION
  Report Type: 
  Country: None (occurrence: None)
  Receive Date: 20090522
  Receipt Date: 20090202
  Transmission Date: 20091009
  Serious: No
  Sender: FDA-Public Use
  Company Number: 8042301

PATIENT
  Age: 20 Year
  Sex: Male
  Weight: 177.8 kg

DRUGS (2)
  1. CIMZIA [Suspect]
     Indication: COLITIS ULCERATIVE
     Dosage: 400 MG SC
     Route: 058
     Dates: start: 20081203
  2. PREDNISONE [Concomitant]

REACTIONS (3)
  - DYSPEPSIA [None]
  - DYSPNOEA [None]
  - OFF LABEL USE [None]
